FAERS Safety Report 8025151-4 (Version None)
Quarter: 2012Q1

REPORT INFORMATION
  Report Type: 
  Country: None (occurrence: None)
  Receive Date: 20120105
  Receipt Date: 20100303
  Transmission Date: 20120608
  Serious: Yes (Other)
  Sender: FDA-Public Use
  Company Number: US-GLAXOSMITHKLINE-A0849346A

PATIENT
  Sex: Male
  Weight: 146.8 kg

DRUGS (6)
  1. GLUCOVANCE [Concomitant]
  2. AVANDIA [Suspect]
     Indication: DIABETES MELLITUS
     Dosage: 4MG TWICE PER DAY
     Route: 048
     Dates: end: 20070126
  3. ADVAIR DISKUS 100/50 [Concomitant]
  4. ALBUTEROL [Concomitant]
  5. FLOMAX [Concomitant]
  6. ALLEGRA [Concomitant]

REACTIONS (7)
  - CARDIAC FAILURE CONGESTIVE [None]
  - PRODUCTIVE COUGH [None]
  - DIZZINESS [None]
  - DYSPNOEA [None]
  - RESPIRATORY DISORDER [None]
  - CARDIOVASCULAR DISORDER [None]
  - ASTHENIA [None]
